FAERS Safety Report 9931112 (Version 2)
Quarter: 2014Q1

REPORT INFORMATION
  Report Type: Spontaneous
  Country: CH (occurrence: CH)
  Receive Date: 20140227
  Receipt Date: 20140306
  Transmission Date: 20141002
  Serious: Yes (Hospitalization, Other)
  Sender: FDA-Public Use
  Company Number: CH-MERCK-1402CHE010920

PATIENT
  Age: 53 Year
  Sex: Female

DRUGS (2)
  1. REMERON [Suspect]
     Dosage: 10 DF, ONCE, TOTAL DAILY DOSE: 300 MG
     Route: 048
     Dates: start: 20131105, end: 20131105
  2. VENLAFAXINE HYDROCHLORIDE [Suspect]
     Dosage: 30 DF, ONCE, TOTAL DAILY DOSE: 4.5 G
     Route: 048
     Dates: start: 20131105, end: 20131105

REACTIONS (12)
  - Tachycardia [Recovered/Resolved]
  - Suicide attempt [Recovered/Resolved]
  - Electrocardiogram QT prolonged [Recovered/Resolved]
  - Dysarthria [Recovered/Resolved]
  - Hypokalaemia [Recovered/Resolved]
  - Hypoglycaemia [Recovered/Resolved]
  - Epilepsy [Recovered/Resolved]
  - Fall [Unknown]
  - Disorientation [Recovered/Resolved]
  - Jaw fracture [Unknown]
  - Poisoning [Unknown]
  - Intentional overdose [Unknown]
